FAERS Safety Report 9478799 (Version 3)
Quarter: 2013Q4

REPORT INFORMATION
  Report Type: Spontaneous
  Country: JP (occurrence: JP)
  Receive Date: 20130827
  Receipt Date: 20131018
  Transmission Date: 20140711
  Serious: Yes (Other)
  Sender: FDA-Public Use
  Company Number: JP-JNJFOC-20130813050

PATIENT
  Age: 71 Year
  Sex: Male
  Weight: 44 kg

DRUGS (13)
  1. REMICADE [Suspect]
     Indication: RHEUMATOID ARTHRITIS
     Route: 042
     Dates: start: 20031210
  2. REMICADE [Suspect]
     Indication: RHEUMATOID ARTHRITIS
     Dosage: 63RD DOSE
     Route: 042
     Dates: start: 20130412
  3. RHEUMATREX [Suspect]
     Indication: RHEUMATOID ARTHRITIS
     Route: 048
     Dates: start: 20030407, end: 20130621
  4. DIPHENHYDRAMINE HYDROCHLORIDE [Concomitant]
     Indication: PROPHYLAXIS
     Route: 048
  5. BACTRAMIN [Concomitant]
     Indication: PROPHYLAXIS
     Route: 048
  6. PREDNISOLONE [Concomitant]
     Indication: RHEUMATOID ARTHRITIS
     Route: 048
  7. STROCAIN [Concomitant]
     Indication: GASTRITIS
     Route: 048
  8. SELBEX [Concomitant]
     Indication: GASTRITIS
     Route: 048
  9. TAKEPRON [Concomitant]
     Indication: GASTRITIS
     Route: 048
  10. BONALON [Concomitant]
     Indication: OSTEOPOROSIS
     Route: 048
  11. FERROMIA [Concomitant]
     Indication: ANAEMIA
     Route: 048
  12. FOLIAMIN [Concomitant]
     Indication: RHEUMATOID ARTHRITIS
     Route: 048
     Dates: end: 20130621
  13. METALCAPTASE [Concomitant]
     Indication: RHEUMATOID ARTHRITIS
     Dosage: 300 MG, 100 MG
     Route: 048
     Dates: start: 20021213, end: 20121026

REACTIONS (1)
  - Lymphoma [Unknown]
